FAERS Safety Report 21262057 (Version 1)
Quarter: 2022Q3

REPORT INFORMATION
  Report Type: Spontaneous
  Country: CA (occurrence: CA)
  Receive Date: 20220827
  Receipt Date: 20220827
  Transmission Date: 20221027
  Serious: Yes (Hospitalization)
  Sender: FDA-Public Use
  Company Number: None

PATIENT
  Age: 84 Year
  Sex: Female

DRUGS (1)
  1. ROSUVASTATIN CALCIUM [Suspect]
     Active Substance: ROSUVASTATIN CALCIUM
     Indication: Acute coronary syndrome
     Dosage: 1 EVERY 1 DAYS
     Route: 048

REACTIONS (6)
  - Acute kidney injury [Unknown]
  - Asthenia [Unknown]
  - Blood creatine phosphokinase abnormal [Unknown]
  - Gait disturbance [Unknown]
  - Hypoaesthesia [Unknown]
  - Myoglobin urine present [Unknown]
